FAERS Safety Report 11394758 (Version 1)
Quarter: 2015Q3

REPORT INFORMATION
  Report Type: Spontaneous
  Country: US (occurrence: None)
  Receive Date: 20150817
  Receipt Date: 20150817
  Transmission Date: 20151125
  Serious: Yes (Life-Threatening, Other)
  Sender: FDA-Public Use
  Company Number: None

PATIENT
  Age: 38 Year
  Sex: Female
  Weight: 58.97 kg

DRUGS (5)
  1. MOXYFLOXACIN [Concomitant]
  2. PZA [Concomitant]
     Active Substance: PYRAZINAMIDE
  3. CYCLOSERINE. [Concomitant]
     Active Substance: CYCLOSERINE
  4. CAPREOMICIN [Suspect]
     Active Substance: CAPREOMYCIN
     Indication: TUBERCULOSIS
     Dosage: INTO THE MUSCLE
     Route: 030
     Dates: start: 20150207, end: 20150324
  5. B-6 [Concomitant]

REACTIONS (2)
  - Obstructive airways disorder [None]
  - Hypersensitivity [None]

NARRATIVE: CASE EVENT DATE: 20150310
